FAERS Safety Report 5449087-8 (Version None)
Quarter: 2007Q3

REPORT INFORMATION
  Report Type: 
  Country: None (occurrence: None)
  Receive Date: 20070911
  Receipt Date: 20070904
  Transmission Date: 20080115
  Serious: Yes (Other)
  Sender: FDA-Public Use
  Company Number: HQWYE988104SEP07

PATIENT
  Age: 38 Year
  Sex: Female
  Weight: 54.48 kg

DRUGS (5)
  1. PREMARIN [Suspect]
     Dosage: 0.45MG UNKNOWN FREQUENCY
     Route: 048
  2. EFFEXOR [Concomitant]
  3. TYLENOL EXTRA STRENGTH [Suspect]
     Indication: HEADACHE
     Route: 048
     Dates: start: 20070809, end: 20070809
  4. TYLENOL EXTRA STRENGTH [Suspect]
     Indication: BACK PAIN
     Route: 048
     Dates: start: 20070821, end: 20070821
  5. ALPRAZOLAM [Concomitant]
     Indication: ANXIETY

REACTIONS (3)
  - LIP SWELLING [None]
  - OEDEMA PERIPHERAL [None]
  - PHARYNGEAL OEDEMA [None]
